FAERS Safety Report 8536392 (Version 4)
Quarter: 2013Q3

REPORT INFORMATION
  Report Type: Report from Study
  Country: GB (occurrence: GB)
  Receive Date: 20120430
  Receipt Date: 20130809
  Transmission Date: 20140515
  Serious: Yes (Life-Threatening, Hospitalization, Other)
  Sender: FDA-Public Use
  Company Number: DK-GILEAD-2012-0053980

PATIENT
  Age: 24 Year
  Sex: Female

DRUGS (10)
  1. EFAVIRENZ/EMTRICITABINE/TENOFOVIR DISOPROXIL FUMARATE [Suspect]
     Indication: HIV INFECTION
     Dosage: 1 DF, QD
     Route: 048
     Dates: start: 20120306, end: 20120412
  2. EFAVIRENZ/EMTRICITABINE/TENOFOVIR DISOPROXIL FUMARATE [Suspect]
     Dosage: 5 UNK, UNK
     Dates: start: 20120412, end: 20120412
  3. MEFENAMIC [Concomitant]
     Indication: MENORRHAGIA
     Dosage: 53 DF, QD
     Dates: start: 20120413, end: 20120414
  4. METRONIDAZOLE [Concomitant]
     Indication: MENORRHAGIA
     Dosage: 10 DF, QD
     Dates: start: 20120413, end: 20120414
  5. OMEPRAZOLE [Concomitant]
     Indication: PRODUCT USED FOR UNKNOWN INDICATION
     Dosage: 10 DF, QD
     Dates: start: 20130413, end: 20130414
  6. TRANEXAMIC [Concomitant]
     Indication: PRODUCT USED FOR UNKNOWN INDICATION
     Dosage: 25 DF, QD
     Dates: start: 20120413, end: 20120414
  7. CHLORPROMAZINE [Concomitant]
     Indication: SUICIDE ATTEMPT
     Dosage: 750 MG, QD
     Dates: start: 20130613, end: 20130613
  8. PAROXETINE [Concomitant]
     Indication: SUICIDE ATTEMPT
     Dosage: UNK
     Dates: start: 20130613, end: 20130613
  9. ARIPIPRAZOLE [Concomitant]
     Indication: SUICIDE ATTEMPT
     Dosage: UNK
     Dates: start: 20130613, end: 20130613
  10. ALCOHOL [Concomitant]
     Indication: SUICIDE ATTEMPT
     Dosage: UNK
     Dates: start: 20130613, end: 20130613

REACTIONS (2)
  - Suicide attempt [Recovered/Resolved]
  - Suicide attempt [Recovered/Resolved]
